FAERS Safety Report 9783327 (Version 3)
Quarter: 2014Q2

REPORT INFORMATION
  Report Type: Spontaneous
  Country: US (occurrence: US)
  Receive Date: 20131226
  Receipt Date: 20140521
  Transmission Date: 20141212
  Serious: Yes (Hospitalization)
  Sender: FDA-Public Use
  Company Number: US-BAYER-2013-155592

PATIENT
  Age: 25 Year
  Sex: Female
  Weight: 90.7 kg

DRUGS (7)
  1. YAZ [Suspect]
     Indication: CONTRACEPTION
     Dosage: UNK
     Dates: start: 200904
  2. PRENATAL VITAMINS [Concomitant]
     Dosage: DAILY
     Dates: start: 20090322
  3. DOCUSATE SODIUM [Concomitant]
     Dosage: 100 MG, BID
     Dates: start: 20090322
  4. IBUPROFEN [Concomitant]
     Indication: PAIN
     Dosage: 800 MG EVERY 8 HOURS PRN
     Dates: start: 20090322
  5. PERCOCET [Concomitant]
     Indication: PAIN
     Dosage: 5/325:1-2 EVERY 4 TO 6 HOURS AS NEEDED
     Dates: start: 20090322
  6. IRON [Concomitant]
     Dosage: 325 MG DAILY
     Dates: start: 20090322
  7. ULTRAM [Concomitant]
     Dosage: 50 MG EVERY 6 HOURS
     Dates: start: 20090423

REACTIONS (6)
  - Pulmonary embolism [None]
  - Pelvic venous thrombosis [Recovered/Resolved]
  - Deep vein thrombosis [Recovered/Resolved]
  - Deep vein thrombosis [None]
  - Emotional distress [None]
  - Injury [None]
